FAERS Safety Report 12713078 (Version 5)
Quarter: 2017Q1

REPORT INFORMATION
  Report Type: Spontaneous
  Country: JP (occurrence: JP)
  Receive Date: 20160902
  Receipt Date: 20170216
  Transmission Date: 20170428
  Serious: Yes (Death, Hospitalization, Other)
  Sender: FDA-Public Use
  Company Number: JP-TEVA-688167ISR

PATIENT
  Age: 95 Year
  Sex: Female

DRUGS (5)
  1. BENET 2.5 MG [Suspect]
     Active Substance: RISEDRONATE SODIUM
     Indication: OSTEOPOROSIS
     Dosage: 2.5 MILLIGRAM DAILY;
     Route: 048
     Dates: start: 200301, end: 201605
  2. FEBUXOSTAT. [Concomitant]
     Active Substance: FEBUXOSTAT
     Indication: HYPERURICAEMIA
     Dosage: 20 MILLIGRAM DAILY;
     Route: 048
  3. WARFARIN [Concomitant]
     Active Substance: WARFARIN
     Indication: ATRIAL FIBRILLATION
     Dosage: 1 MILLIGRAM DAILY;
     Route: 048
  4. MAINTATE [Concomitant]
     Active Substance: BISOPROLOL FUMARATE
     Indication: HYPERTENSION
     Dosage: 2.5 MILLIGRAM DAILY;
     Route: 048
  5. LASIX [Concomitant]
     Active Substance: FUROSEMIDE
     Indication: HYPERTENSION
     Dosage: 40 MILLIGRAM DAILY;
     Route: 048

REACTIONS (10)
  - Cellulitis [Not Recovered/Not Resolved]
  - Purulent discharge [Unknown]
  - Dental fistula [Unknown]
  - Osteonecrosis of jaw [Not Recovered/Not Resolved]
  - Osteomyelitis [Unknown]
  - Abscess jaw [Unknown]
  - Pain in jaw [Unknown]
  - Lymphadenopathy [Unknown]
  - Inflammation [Unknown]
  - Swelling [Unknown]

NARRATIVE: CASE EVENT DATE: 2016
